FAERS Safety Report 9373330 (Version 1)
Quarter: 2013Q2

REPORT INFORMATION
  Report Type: Spontaneous
  Country: NL (occurrence: NL)
  Receive Date: 20130627
  Receipt Date: 20130627
  Transmission Date: 20140414
  Serious: Yes (Other)
  Sender: FDA-Public Use
  Company Number: NL-GLAXOSMITHKLINE-B0898210A

PATIENT
  Age: 26 Year
  Sex: Male

DRUGS (6)
  1. FLUTICASONE/SALMETEROL [Suspect]
     Indication: ASTHMA
     Route: 055
  2. RITONAVIR [Suspect]
     Indication: HIV INFECTION
     Dosage: 100MG PER DAY
     Route: 048
  3. ATAZANAVIR [Concomitant]
     Indication: HIV INFECTION
     Dosage: 300MG PER DAY
     Route: 048
  4. TENOFOVIR [Concomitant]
     Indication: HIV INFECTION
     Dosage: 245MG PER DAY
     Route: 048
  5. EMTRICITABINE [Concomitant]
     Indication: HIV INFECTION
     Dosage: 200MG PER DAY
     Route: 048
  6. VENLAFAXINE [Concomitant]
     Indication: DYSTHYMIC DISORDER
     Dosage: 150MG PER DAY
     Route: 065

REACTIONS (7)
  - Cushing^s syndrome [Recovered/Resolved]
  - Drug interaction [Unknown]
  - Pain in extremity [Recovered/Resolved]
  - Gait disturbance [Recovered/Resolved]
  - Swelling face [Recovered/Resolved]
  - Weight increased [Recovered/Resolved]
  - Blood cortisol decreased [Recovered/Resolved]
